FAERS Safety Report 6528580-0 (Version None)
Quarter: 2009Q4

REPORT INFORMATION
  Report Type: 
  Country: None (occurrence: None)
  Receive Date: 20091231
  Receipt Date: 20091216
  Transmission Date: 20100525
  Serious: Yes (Hospitalization)
  Sender: FDA-Public Use
  Company Number: IDA-00312

PATIENT

DRUGS (1)
  1. PROPRANOLOL [Suspect]

REACTIONS (3)
  - CARDIOGENIC SHOCK [None]
  - DRUG TOXICITY [None]
  - OVERDOSE [None]
